FAERS Safety Report 18559914 (Version 1)
Quarter: 2020Q4

REPORT INFORMATION
  Report Type: Spontaneous
  Country: US (occurrence: US)
  Receive Date: 20201127
  Receipt Date: 20201127
  Transmission Date: 20210114
  Serious: Yes (Hospitalization)
  Sender: FDA-Public Use
  Company Number: None

PATIENT
  Age: 75 Year
  Sex: Female

DRUGS (1)
  1. ADEMPAS [Suspect]
     Active Substance: RIOCIGUAT
     Indication: PULMONARY HYPERTENSION
     Route: 048
     Dates: start: 202003

REACTIONS (4)
  - Presyncope [None]
  - Haematemesis [None]
  - Haemoglobin decreased [None]
  - Oesophageal ulcer [None]

NARRATIVE: CASE EVENT DATE: 20201123
